FAERS Safety Report 9335434 (Version 2)
Quarter: 2013Q2

REPORT INFORMATION
  Report Type: Spontaneous
  Country: SK (occurrence: SK)
  Receive Date: 20130605
  Receipt Date: 20130626
  Transmission Date: 20140414
  Serious: Yes (Other)
  Sender: FDA-Public Use
  Company Number: SK-ELI_LILLY_AND_COMPANY-SK201305009489

PATIENT
  Age: 65 Year
  Sex: Male

DRUGS (10)
  1. ALIMTA [Suspect]
     Indication: LUNG ADENOCARCINOMA
     Dosage: 500 MG/M2, EVERY THREE WEEKS
     Dates: start: 20121130, end: 20130222
  2. CISPLATIN [Suspect]
     Indication: LUNG ADENOCARCINOMA
     Dosage: 75 MG/M2,EVERY THREE WEEKS
     Route: 042
     Dates: start: 20121016
  3. LUSOPRESS [Concomitant]
     Indication: HYPERTENSION
  4. CLOPIDOGREL [Concomitant]
  5. GLIMEPIRID [Concomitant]
     Indication: DIABETES MELLITUS
  6. ATORIS [Concomitant]
  7. NOLPAZA [Concomitant]
     Indication: GASTRODUODENAL ULCER
  8. DEXAMETHASONE [Concomitant]
  9. VITAMIN B12 [Concomitant]
  10. FOLIC ACID [Concomitant]

REACTIONS (4)
  - Cardiotoxicity [Recovering/Resolving]
  - Anaemia [Recovering/Resolving]
  - Neutropenia [Recovering/Resolving]
  - Bronchitis [Recovering/Resolving]
